FAERS Safety Report 4512509-0 (Version None)
Quarter: 2004Q4

REPORT INFORMATION
  Report Type: 
  Country: None (occurrence: None)
  Receive Date: 20041124
  Receipt Date: 20041110
  Transmission Date: 20050328
  Serious: Yes (Death, Hospitalization)
  Sender: FDA-Public Use
  Company Number: US_990928976

PATIENT
  Age: 51 Year
  Sex: Male
  Weight: 65 kg

DRUGS (15)
  1. HUMATROPE [Suspect]
     Indication: GROWTH HORMONE DEFICIENCY
     Dosage: 0.38 MG/DAY
     Dates: start: 19980605
  2. ALBUTEROL [Concomitant]
  3. AMITRIPTYLINE HCL [Concomitant]
  4. GEMFIBROZIL [Concomitant]
  5. IBUPROFEN [Concomitant]
  6. INDOMETHACIN [Concomitant]
  7. PRILOSEC [Concomitant]
  8. SINGULAIR [Concomitant]
  9. VANCERIL (BECLOMETASONE DIPROPIONATE) [Concomitant]
  10. VERAPAMIL [Concomitant]
  11. MULTI-VITAMIN [Concomitant]
  12. LIPITOR [Concomitant]
  13. ALLEGRA [Concomitant]
  14. ATROVENT [Concomitant]
  15. MIACALCIN [Concomitant]

REACTIONS (5)
  - BLOOD PRESSURE INCREASED [None]
  - CHEST PAIN [None]
  - FLUID OVERLOAD [None]
  - NAUSEA [None]
  - WEIGHT INCREASED [None]
